FAERS Safety Report 9714242 (Version 2)
Quarter: 2013Q4

REPORT INFORMATION
  Report Type: Spontaneous
  Country: US (occurrence: US)
  Receive Date: 20131126
  Receipt Date: 20131126
  Transmission Date: 20140711
  Serious: No
  Sender: FDA-Public Use
  Company Number: US-GILEAD-2008-0019106

PATIENT
  Age: 78 Year
  Sex: Female
  Weight: 84.37 kg

DRUGS (18)
  1. LETAIRIS [Suspect]
     Indication: PULMONARY ARTERIAL HYPERTENSION
     Route: 048
     Dates: start: 20080411, end: 20081214
  2. LETAIRIS [Suspect]
     Route: 048
     Dates: start: 20081215
  3. TRACLEER [Concomitant]
  4. PRILOSEC [Concomitant]
  5. ASA [Concomitant]
  6. LASIX [Concomitant]
  7. MEVACOR [Concomitant]
  8. TRUSOPT 2% [Concomitant]
  9. LUMIGAN 0.03% [Concomitant]
  10. ALPHAGAN P 0.1% [Concomitant]
  11. SYNTHROID [Concomitant]
  12. DILTIAZEM [Concomitant]
  13. TOPROL XL [Concomitant]
  14. MAG OXIDE [Concomitant]
  15. FISH OIL [Concomitant]
  16. KLOR-CON [Concomitant]
  17. CALCIUM [Concomitant]
  18. GARLIC [Concomitant]

REACTIONS (4)
  - Liver function test abnormal [Recovered/Resolved]
  - Blood pressure increased [Recovered/Resolved]
  - Headache [Recovered/Resolved]
  - Oedema peripheral [Recovered/Resolved]
